FAERS Safety Report 8286326 (Version 2)
Quarter: 2012Q4

REPORT INFORMATION
  Report Type: Spontaneous
  Country: GB (occurrence: None)
  Receive Date: 20111207
  Receipt Date: 20120822
  Transmission Date: 20130627
  Serious: Yes (Disabling)
  Sender: FDA-Public Use
  Company Number: 2011AP002795

PATIENT
  Sex: Female

DRUGS (4)
  1. LEFLUNOMIDE [Suspect]
     Dates: start: 201003
  2. HUMIRA [Suspect]
     Indication: RHEUMATOID ARTHRITIS
     Dates: start: 201003
  3. ENBREL [Concomitant]
  4. METHOTREXATE [Concomitant]

REACTIONS (2)
  - DYSPNOEA [None]
  - PULMONARY SARCOIDOSIS [None]
